FAERS Safety Report 8759797 (Version 1)
Quarter: 2012Q4

REPORT INFORMATION
  Report Type: 
  Country: US (occurrence: US)
  Receive Date: 20120829
  Receipt Date: 20120829
  Transmission Date: 20130627
  Serious: No
  Sender: FDA-Public Use
  Company Number: US-009507513-1208USA000125

PATIENT

DRUGS (3)
  1. VICTRELIS [Suspect]
     Dosage: 800 mg, tid
     Route: 048
     Dates: end: 20120708
  2. REBETOL [Suspect]
     Route: 048
  3. PEGASYS [Suspect]
     Dosage: 180MCG/0.5ML PFS

REACTIONS (2)
  - Psoriasis [Unknown]
  - Pyrexia [Unknown]
